FAERS Safety Report 4672465-1 (Version None)
Quarter: 2005Q2

REPORT INFORMATION
  Report Type: 
  Country: None (occurrence: None)
  Receive Date: 20050523
  Receipt Date: 20050506
  Transmission Date: 20051028
  Serious: Yes (Other)
  Sender: FDA-Public Use
  Company Number: TRP_0112_2005

PATIENT
  Age: 47 Year
  Sex: Male
  Weight: 100 kg

DRUGS (2)
  1. RIBAVIRIN [Suspect]
     Indication: HEPATITIS C
     Dosage: 1200 MG QDAY PO
     Route: 048
     Dates: start: 20030901, end: 20040101
  2. PEGINTERFERON-ALFA2B [Suspect]
     Indication: HEPATITIS C
     Dosage: 1.5 MCG/KG QWK SC
     Route: 058
     Dates: start: 20030901, end: 20040101

REACTIONS (2)
  - PORPHYRIA NON-ACUTE [None]
  - THERAPY NON-RESPONDER [None]
